FAERS Safety Report 24357963 (Version 1)
Quarter: 2024Q3

REPORT INFORMATION
  Report Type: Spontaneous
  Country: US (occurrence: US)
  Receive Date: 20240924
  Receipt Date: 20240924
  Transmission Date: 20241017
  Serious: No
  Sender: CIPLA
  Company Number: US-CIPLA LTD.-2024US07692

PATIENT

DRUGS (3)
  1. DICLOFENAC [Suspect]
     Active Substance: DICLOFENAC
     Indication: Arthritis
     Dosage: 2 GRAM, 2 TIMES A DAY AS NEEDED (PRN)
     Route: 061
     Dates: start: 202310, end: 202403
  2. DICLOFENAC [Suspect]
     Active Substance: DICLOFENAC
     Dosage: 2 GRAM, 2 TIMES A DAY AS NEEDED (PRN), USED COUPLE OF TIMES
     Route: 061
     Dates: start: 2024, end: 2024
  3. AMLODIPINE [Concomitant]
     Active Substance: AMLODIPINE BESYLATE
     Indication: Blood pressure abnormal
     Dosage: 10 MILLIGRAM, QD (FOR YEARS)
     Route: 048

REACTIONS (4)
  - Application site hypoaesthesia [Not Recovered/Not Resolved]
  - Application site paraesthesia [Not Recovered/Not Resolved]
  - Application site pain [Not Recovered/Not Resolved]
  - Application site erythema [Not Recovered/Not Resolved]

NARRATIVE: CASE EVENT DATE: 20231001
